FAERS Safety Report 15605361 (Version 1)
Quarter: 2018Q4

REPORT INFORMATION
  Report Type: Spontaneous
  Country: FR (occurrence: FR)
  Receive Date: 20181112
  Receipt Date: 20181112
  Transmission Date: 20190205
  Serious: Yes (Hospitalization, Other)
  Sender: FDA-Public Use
  Company Number: FR-AUROBINDO-AUR-APL-2018-054353

PATIENT
  Age: 75 Year
  Sex: Male
  Weight: 76 kg

DRUGS (5)
  1. HYDREA [Interacting]
     Active Substance: HYDROXYUREA
     Indication: POLYCYTHAEMIA VERA
     Dosage: 500 MILLIGRAM, DAILY
     Route: 048
     Dates: start: 20180516
  2. CEFTRIAXONE. [Interacting]
     Active Substance: CEFTRIAXONE
     Indication: FEBRILE INFECTION
     Dosage: 1 GRAM, DAILY
     Route: 042
     Dates: start: 20180618, end: 20180620
  3. COUMADINE [Interacting]
     Active Substance: WARFARIN SODIUM
     Indication: ARTERIAL DISORDER
     Dosage: UNK,INR TARGET: 2-3
     Route: 048
     Dates: end: 20180620
  4. KARDEGIC [Interacting]
     Active Substance: ASPIRIN DL-LYSINE
     Indication: ARTERIAL DISORDER
     Dosage: 75 MILLIGRAM, DAILY
     Route: 048
  5. CIPROFLOXACIN. [Suspect]
     Active Substance: CIPROFLOXACIN
     Indication: FEBRILE INFECTION
     Dosage: UNK
     Route: 048
     Dates: start: 20180618, end: 20180620

REACTIONS (2)
  - Haemorrhagic anaemia [Recovered/Resolved]
  - Gastrointestinal haemorrhage [Recovered/Resolved]

NARRATIVE: CASE EVENT DATE: 20180620
